FAERS Safety Report 23094450 (Version 1)
Quarter: 2023Q4

REPORT INFORMATION
  Report Type: Report from Study
  Country: US (occurrence: TR)
  Receive Date: 20231023
  Receipt Date: 20231023
  Transmission Date: 20240109
  Serious: Yes (Death, Hospitalization, Other)
  Sender: FDA-Public Use
  Company Number: US-SA-2016SA202925

PATIENT
  Age: 51 Year
  Sex: Female
  Weight: 70 kg

DRUGS (17)
  1. OXALIPLATIN [Suspect]
     Active Substance: OXALIPLATIN
     Indication: Adenocarcinoma gastric
     Dosage: UNK UNK,QCY
     Route: 042
     Dates: start: 20160930, end: 20160930
  2. OXALIPLATIN [Suspect]
     Active Substance: OXALIPLATIN
     Dosage: 150 MG,QCY
     Route: 042
     Dates: start: 20161017, end: 20161017
  3. OXALIPLATIN [Suspect]
     Active Substance: OXALIPLATIN
     Dosage: 162 MG,QCY
     Route: 042
     Dates: start: 20161019, end: 20161019
  4. ENOXAPARIN SODIUM [Suspect]
     Active Substance: ENOXAPARIN SODIUM
     Indication: Pulmonary embolism
     Dosage: UNK UNK,UNK
     Route: 058
     Dates: start: 20161024
  5. ZOFRAN [Suspect]
     Active Substance: ONDANSETRON HYDROCHLORIDE
     Indication: Nausea
     Dosage: UNK UNK,UNK
     Route: 048
     Dates: start: 20160930
  6. LEUCOVORIN [Suspect]
     Active Substance: LEUCOVORIN\LEUCOVORIN CALCIUM
     Indication: Adenocarcinoma gastric
     Dosage: 720 MG,QCY
     Route: 042
     Dates: start: 20160930, end: 20160930
  7. LEUCOVORIN [Suspect]
     Active Substance: LEUCOVORIN\LEUCOVORIN CALCIUM
     Dosage: 720 MG,QCY
     Route: 042
     Dates: start: 20161017, end: 20161017
  8. FLUOROURACIL [Suspect]
     Active Substance: FLUOROURACIL
     Indication: Adenocarcinoma gastric
     Dosage: 720 MG,QCY
     Route: 040
     Dates: start: 20160930, end: 20160930
  9. FLUOROURACIL [Suspect]
     Active Substance: FLUOROURACIL
     Dosage: 4300 MG,QCY
     Route: 042
     Dates: start: 20160930, end: 20161002
  10. FLUOROURACIL [Suspect]
     Active Substance: FLUOROURACIL
     Dosage: 720 MG,QCY
     Route: 040
     Dates: start: 20161017, end: 20161017
  11. FLUOROURACIL [Suspect]
     Active Substance: FLUOROURACIL
     Dosage: 4300 MG,QCY
     Route: 042
     Dates: start: 20161017, end: 20161019
  12. INVESTIGATIONAL PRODUCT [Suspect]
     Active Substance: INVESTIGATIONAL PRODUCT
     Indication: Adenocarcinoma gastric
     Dosage: 800 MG,QCY
     Route: 042
     Dates: start: 20160930, end: 20160930
  13. INVESTIGATIONAL PRODUCT [Suspect]
     Active Substance: INVESTIGATIONAL PRODUCT
     Dosage: 800 MG,QCY
     Route: 042
     Dates: start: 20161017, end: 20161017
  14. UNSPECIFIED INGREDIENT [Concomitant]
     Active Substance: UNSPECIFIED INGREDIENT
     Dosage: UNK UNK,UNK
     Route: 065
     Dates: start: 20160930, end: 20161003
  15. XANAX [Concomitant]
     Active Substance: ALPRAZOLAM
     Dosage: UNK UNK,UNK
     Route: 065
     Dates: start: 20160930
  16. DEXAMETHASONE [Concomitant]
     Active Substance: DEXAMETHASONE
     Dosage: UNK UNK,UNK
     Route: 065
     Dates: start: 20161003, end: 20161006
  17. METOCLOPRAMIDE HYDROCHLORIDE [Concomitant]
     Active Substance: METOCLOPRAMIDE HYDROCHLORIDE
     Dosage: UNK UNK,UNK
     Route: 065
     Dates: start: 20161003

REACTIONS (3)
  - Death [Fatal]
  - Pulmonary embolism [Recovered/Resolved]
  - Vomiting [Not Recovered/Not Resolved]

NARRATIVE: CASE EVENT DATE: 20161212
